FAERS Safety Report 12800878 (Version 3)
Quarter: 2017Q3

REPORT INFORMATION
  Report Type: Report from Study
  Country: BR (occurrence: BR)
  Receive Date: 20161002
  Receipt Date: 20170719
  Transmission Date: 20171127
  Serious: Yes (Hospitalization, Other)
  Sender: FDA-Public Use
  Company Number: PHHY2016BR081338

PATIENT
  Sex: Female
  Weight: 44 kg

DRUGS (1)
  1. EXJADE [Suspect]
     Active Substance: DEFERASIROX
     Indication: SICKLE CELL ANAEMIA
     Dosage: 1000 MG, QD (500 MG 2 TABLETS)
     Route: 048
     Dates: start: 2010

REACTIONS (12)
  - Growth retardation [Unknown]
  - Haematocrit increased [Unknown]
  - Deafness [Recovering/Resolving]
  - Movement disorder [Recovering/Resolving]
  - Blindness [Recovering/Resolving]
  - Urinary tract infection [Unknown]
  - Cystitis [Unknown]
  - Cerebral ischaemia [Unknown]
  - Weight increased [Unknown]
  - Paralysis [Unknown]
  - Arthralgia [Unknown]
  - Infection [Unknown]
